FAERS Safety Report 5154713-7 (Version None)
Quarter: 2006Q4

REPORT INFORMATION
  Report Type: 
  Country: None (occurrence: None)
  Receive Date: 20061116
  Receipt Date: 20061116
  Transmission Date: 20070319
  Serious: Yes (Life-Threatening, Hospitalization)
  Sender: FDA-Public Use
  Company Number: None

PATIENT
  Age: 81 Year
  Sex: Male
  Weight: 77.1115 kg

DRUGS (1)
  1. FLOMAX [Suspect]
     Dosage: CAPSULES

REACTIONS (1)
  - MYASTHENIA GRAVIS [None]
